FAERS Safety Report 7042905-1 (Version None)
Quarter: 2010Q4

REPORT INFORMATION
  Report Type: 
  Country: None (occurrence: None)
  Receive Date: 20101013
  Receipt Date: 20091105
  Transmission Date: 20110411
  Serious: No
  Sender: FDA-Public Use
  Company Number: US-ASTRAZENECA-2009SE24659

PATIENT
  Sex: Female
  Weight: 65.8 kg

DRUGS (3)
  1. SYMBICORT [Suspect]
     Dosage: 80/4.5 MG 2 PUFFS
     Route: 055
     Dates: start: 20091104
  2. NASONEX [Concomitant]
     Indication: HYPERSENSITIVITY
  3. PROVENTIL [Concomitant]

REACTIONS (3)
  - BLOOD PRESSURE INCREASED [None]
  - HEART RATE INCREASED [None]
  - PEAK EXPIRATORY FLOW RATE DECREASED [None]
